FAERS Safety Report 7994704-1 (Version None)
Quarter: 2011Q4

REPORT INFORMATION
  Report Type: 
  Country: None (occurrence: None)
  Receive Date: 20111220
  Receipt Date: 20111215
  Transmission Date: 20120403
  Serious: Yes (Death)
  Sender: FDA-Public Use
  Company Number: CHPA2011DE018207

PATIENT
  Age: 68 Year
  Sex: Female
  Weight: 62 kg

DRUGS (2)
  1. NOVALGIN                                /SCH/ [Concomitant]
     Indication: METASTATIC PAIN
     Dosage: 20 DRP, TID
     Route: 048
     Dates: end: 20110701
  2. IBUPROFEN [Suspect]
     Indication: METASTATIC PAIN
     Dosage: 600 MG, TID
     Route: 048
     Dates: end: 20110629

REACTIONS (7)
  - HEPATIC FAILURE [None]
  - COMA HEPATIC [None]
  - HEPATIC ENCEPHALOPATHY [None]
  - PROTEIN-LOSING GASTROENTEROPATHY [None]
  - OVERDOSE [None]
  - OFF LABEL USE [None]
  - CHOLESTASIS [None]
